FAERS Safety Report 20210027 (Version 1)
Quarter: 2021Q4

REPORT INFORMATION
  Report Type: Report from Study
  Country: ES (occurrence: None)
  Receive Date: 20211221
  Receipt Date: 20211221
  Transmission Date: 20220303
  Serious: Yes (Other)
  Sender: FDA-Public Use
  Company Number: ES-ROCHE-2916762

PATIENT

DRUGS (5)
  1. TOCILIZUMAB [Suspect]
     Active Substance: TOCILIZUMAB
     Indication: COVID-19 pneumonia
     Route: 042
     Dates: start: 20200410
  2. PREDNISONE [Concomitant]
     Active Substance: PREDNISONE
     Dates: start: 20200414, end: 20200430
  3. CALCIUM [Concomitant]
     Active Substance: CALCIUM
     Dates: start: 20200414, end: 20200430
  4. HYDROXYCHLOROQUINE [Concomitant]
     Active Substance: HYDROXYCHLOROQUINE
     Dates: start: 20200408, end: 20200419
  5. AZITHROMYCIN [Concomitant]
     Active Substance: AZITHROMYCIN
     Dates: start: 20200408, end: 20200413

REACTIONS (1)
  - Neutropenia [Recovered/Resolved]

NARRATIVE: CASE EVENT DATE: 20200413
